FAERS Safety Report 8415215-5 (Version None)
Quarter: 2012Q2

REPORT INFORMATION
  Report Type: 
  Country: None (occurrence: None)
  Receive Date: 20120606
  Receipt Date: 20120601
  Transmission Date: 20120825
  Serious: No
  Sender: FDA-Public Use
  Company Number: US-PFIZER INC-2012132668

PATIENT
  Sex: Female
  Weight: 68 kg

DRUGS (6)
  1. CLONIDINE [Concomitant]
     Indication: HYPERTENSION
     Dosage: UNK, 2X/DAY
  2. SAVELLA [Concomitant]
     Indication: FIBROMYALGIA
     Dosage: UNK, 2X/DAY
     Dates: start: 20110101
  3. LISINOPRIL [Concomitant]
     Indication: HYPERTENSION
     Dosage: UNK, DAILY
  4. TRAZODONE [Concomitant]
     Indication: DEPRESSION
     Dosage: 50 MG, DAILY
  5. LYRICA [Suspect]
     Indication: FIBROMYALGIA
     Dosage: 225 MG, 2X/DAY
     Dates: end: 20120529
  6. NORCO [Concomitant]
     Indication: TOOTHACHE
     Dosage: UNK
     Dates: start: 20120101

REACTIONS (1)
  - DRUG WITHDRAWAL SYNDROME [None]
